FAERS Safety Report 24158023 (Version 1)
Quarter: 2024Q3

REPORT INFORMATION
  Report Type: Spontaneous
  Country: US (occurrence: US)
  Receive Date: 20240731
  Receipt Date: 20240731
  Transmission Date: 20241016
  Serious: No
  Sender: ROCHE
  Company Number: US-ROCHE-10000041224

PATIENT
  Age: 79 Year
  Sex: Female

DRUGS (3)
  1. ACTEMRA ACTPEN [Suspect]
     Active Substance: TOCILIZUMAB
     Indication: Rheumatoid arthritis
     Route: 058
  2. OMEPRAZOLE [Concomitant]
     Active Substance: OMEPRAZOLE
  3. XARELTO [Concomitant]
     Active Substance: RIVAROXABAN

REACTIONS (4)
  - Visual impairment [Unknown]
  - Thrombosis [Unknown]
  - Headache [Unknown]
  - Product dose omission issue [Unknown]
